FAERS Safety Report 15396229 (Version 1)
Quarter: 2018Q3

REPORT INFORMATION
  Report Type: Spontaneous
  Country: US (occurrence: US)
  Receive Date: 20180911
  Receipt Date: 20180911
  Transmission Date: 20181010
  Serious: No
  Sender: FDA-Public Use
  Company Number: None

PATIENT
  Age: 52 Year
  Sex: Female
  Weight: 99.97 kg

DRUGS (1)
  1. ORENCIA [Suspect]
     Active Substance: ABATACEPT
     Indication: RHEUMATOID ARTHRITIS
     Dosage: RT ANTECUBITAL
     Dates: start: 20180905

REACTIONS (7)
  - Urticaria [None]
  - Oxygen saturation decreased [None]
  - Infusion related reaction [None]
  - Nausea [None]
  - Blood pressure decreased [None]
  - Dyspnoea [None]
  - Depressed level of consciousness [None]

NARRATIVE: CASE EVENT DATE: 20180906
